FAERS Safety Report 18172719 (Version 1)
Quarter: 2020Q3

REPORT INFORMATION
  Report Type: Spontaneous
  Country: ES (occurrence: ES)
  Receive Date: 20200820
  Receipt Date: 20200820
  Transmission Date: 20201103
  Serious: Yes (Hospitalization, Other)
  Sender: FDA-Public Use
  Company Number: ES-AUROBINDO-AUR-APL-2020-040475

PATIENT
  Age: 55 Year
  Sex: Female

DRUGS (1)
  1. VALPROIC ACID. [Suspect]
     Active Substance: VALPROIC ACID
     Indication: PRODUCT USED FOR UNKNOWN INDICATION
     Dosage: 1000 MILLIGRAM, DAILY
     Route: 065

REACTIONS (7)
  - Hyperammonaemic encephalopathy [Recovered/Resolved]
  - Dyskinesia [Unknown]
  - Myoclonus [Unknown]
  - Speech sound disorder [Recovered/Resolved]
  - Asthenia [Unknown]
  - Derealisation [Unknown]
  - Intermittent claudication [Unknown]
